FAERS Safety Report 12411502 (Version 1)
Quarter: 2016Q2

REPORT INFORMATION
  Report Type: Spontaneous
  Country: US (occurrence: US)
  Receive Date: 20160527
  Receipt Date: 20160527
  Transmission Date: 20160815
  Serious: No
  Sender: FDA-Public Use
  Company Number: US-BIOGEN-2016BI00237813

PATIENT
  Sex: Male

DRUGS (1)
  1. TECFIDERA [Suspect]
     Active Substance: DIMETHYL FUMARATE
     Indication: MULTIPLE SCLEROSIS
     Route: 048

REACTIONS (7)
  - Dizziness [Unknown]
  - Flushing [Unknown]
  - Nausea [Unknown]
  - Depressed mood [Unknown]
  - Diarrhoea [Unknown]
  - Abdominal discomfort [Unknown]
  - Tinnitus [Unknown]
